FAERS Safety Report 20876211 (Version 1)
Quarter: 2022Q2

REPORT INFORMATION
  Report Type: Spontaneous
  Country: FR (occurrence: FR)
  Receive Date: 20220526
  Receipt Date: 20220526
  Transmission Date: 20220721
  Serious: Yes (Life-Threatening, Hospitalization)
  Sender: FDA-Public Use
  Company Number: None

PATIENT
  Age: 44 Year
  Sex: Female
  Weight: 50 kg

DRUGS (2)
  1. ALPRAZOLAM [Suspect]
     Active Substance: ALPRAZOLAM
     Indication: Intentional overdose
     Dosage: UNIT DOSE: 7.5 MG, FREQUENCY : 1 TOTAL
     Route: 048
     Dates: start: 20210226, end: 20210226
  2. SERTRALINE [Suspect]
     Active Substance: SERTRALINE HYDROCHLORIDE
     Indication: Intentional overdose
     Dosage: UNIT DOSE: 1000 MG, FREQUENCY : 1 TOTAL
     Route: 048
     Dates: start: 20210226, end: 20210226

REACTIONS (3)
  - Rhabdomyolysis [Recovering/Resolving]
  - Poisoning deliberate [Recovered/Resolved]
  - Coma [Recovered/Resolved]

NARRATIVE: CASE EVENT DATE: 20210226
